FAERS Safety Report 8489133-0 (Version None)
Quarter: 2012Q3

REPORT INFORMATION
  Report Type: 
  Country: None (occurrence: None)
  Receive Date: 20120705
  Receipt Date: 20120702
  Transmission Date: 20120928
  Serious: Yes (Other)
  Sender: FDA-Public Use
  Company Number: PHEH2012US011135

PATIENT
  Sex: Female
  Weight: 70.748 kg

DRUGS (9)
  1. METFORMIN HCL [Concomitant]
     Dosage: 3 DF, UNK
     Route: 048
  2. CITALOPRAM HYDROBROMIDE [Concomitant]
     Dosage: 1.5 DF, QD
     Route: 048
  3. GLYBURIDE [Concomitant]
     Dosage: 1 DF, BID
     Route: 048
  4. CHANTIX [Concomitant]
     Indication: TOBACCO USER
     Dosage: UNK UKN, UNK
  5. GILENYA [Suspect]
     Indication: RELAPSING-REMITTING MULTIPLE SCLEROSIS
     Dosage: 0.5 MG, QD
     Route: 048
     Dates: start: 20120327, end: 20120529
  6. FLUTICASONE PROPIONATE [Concomitant]
     Dosage: 2 DF, UNK
     Route: 045
  7. TIZANIDINE HYDROCHLORIDE [Concomitant]
     Dosage: 2 DF, QHS
     Route: 048
  8. GABAPENTIN [Concomitant]
     Dosage: 300 MG, QHS
     Route: 048
  9. LATANOPROST [Concomitant]
     Dosage: 1 DRP, QHS
     Route: 047

REACTIONS (5)
  - OBSTRUCTIVE AIRWAYS DISORDER [None]
  - DYSPNOEA [None]
  - EMPHYSEMA [None]
  - LUNG HYPERINFLATION [None]
  - CARBON MONOXIDE DIFFUSING CAPACITY DECREASED [None]
